FAERS Safety Report 6347440-1 (Version None)
Quarter: 2009Q3

REPORT INFORMATION
  Report Type: 
  Country: None (occurrence: None)
  Receive Date: 20090910
  Receipt Date: 20090901
  Transmission Date: 20100115
  Serious: Yes (Other)
  Sender: FDA-Public Use
  Company Number: US-ABBOTT-09P-163-0594734-00

PATIENT
  Sex: Male
  Weight: 101.7 kg

DRUGS (17)
  1. NIASPAN [Suspect]
     Indication: HIGH DENSITY LIPOPROTEIN DECREASED
     Dates: start: 20060101
  2. DILITAZEN HCL [Concomitant]
     Indication: DRUG USE FOR UNKNOWN INDICATION
  3. XANAX [Concomitant]
     Indication: DRUG USE FOR UNKNOWN INDICATION
  4. PROPOXY-N-APA [Concomitant]
     Indication: DRUG USE FOR UNKNOWN INDICATION
  5. PROPANOLOL ER [Concomitant]
     Indication: DRUG USE FOR UNKNOWN INDICATION
  6. RAMIPRIL [Concomitant]
     Indication: DRUG USE FOR UNKNOWN INDICATION
  7. PAXIL [Concomitant]
     Indication: DRUG USE FOR UNKNOWN INDICATION
  8. HYDROCHLOROTHIAZIDE [Concomitant]
     Indication: DRUG USE FOR UNKNOWN INDICATION
  9. RANITIDINE [Concomitant]
     Indication: DRUG USE FOR UNKNOWN INDICATION
  10. NEXIUM [Concomitant]
     Indication: DRUG USE FOR UNKNOWN INDICATION
  11. ZETIA [Concomitant]
     Indication: DRUG USE FOR UNKNOWN INDICATION
  12. LIPITOR [Concomitant]
     Indication: DRUG USE FOR UNKNOWN INDICATION
  13. ISOSORBIDE MONO ER [Concomitant]
     Indication: DRUG USE FOR UNKNOWN INDICATION
  14. UROXATRAL [Concomitant]
     Indication: DRUG USE FOR UNKNOWN INDICATION
  15. METFORMIN HCL ER [Concomitant]
     Indication: DRUG USE FOR UNKNOWN INDICATION
  16. FOSAMAX [Concomitant]
     Indication: DRUG USE FOR UNKNOWN INDICATION
  17. ADVIR [Concomitant]
     Indication: DRUG USE FOR UNKNOWN INDICATION

REACTIONS (5)
  - ABDOMINAL DISCOMFORT [None]
  - HIGH DENSITY LIPOPROTEIN DECREASED [None]
  - PRURITUS [None]
  - REGURGITATION [None]
  - VARICES OESOPHAGEAL [None]
